FAERS Safety Report 8830343 (Version 3)
Quarter: 2013Q1

REPORT INFORMATION
  Report Type: Spontaneous
  Country: US (occurrence: US)
  Receive Date: 20121009
  Receipt Date: 20130201
  Transmission Date: 20140127
  Serious: Yes (Other)
  Sender: FDA-Public Use
  Company Number: US-PFIZER INC-2012245450

PATIENT
  Age: 50 Year
  Sex: Female
  Weight: 69.38 kg

DRUGS (2)
  1. PREMPRO [Suspect]
     Indication: HOT FLUSH
     Dosage: 0.625/2.5 MG, 1X/DAY
     Route: 048
     Dates: start: 20120924, end: 2012
  2. LEVOTHYROXINE [Concomitant]
     Route: 048

REACTIONS (2)
  - Vaginal haemorrhage [Unknown]
  - Muscle spasms [Unknown]
